FAERS Safety Report 20754756 (Version 1)
Quarter: 2022Q2

REPORT INFORMATION
  Report Type: Spontaneous
  Country: CN (occurrence: CN)
  Receive Date: 20220427
  Receipt Date: 20220427
  Transmission Date: 20220721
  Serious: Yes (Life-Threatening, Other)
  Sender: FDA-Public Use
  Company Number: None

PATIENT
  Age: 20 Year
  Sex: Female
  Weight: 54 kg

DRUGS (4)
  1. OLANZAPINE [Suspect]
     Active Substance: OLANZAPINE
     Indication: Depression
     Dosage: 10 MG QN
     Route: 048
  2. OLANZAPINE [Suspect]
     Active Substance: OLANZAPINE
     Dosage: 165 MG ONCE DAILY (33 TABLET OF OLANZAPINE)
     Route: 048
     Dates: start: 20220405, end: 20220415
  3. SERTRALINE HYDROCHLORIDE [Suspect]
     Active Substance: SERTRALINE HYDROCHLORIDE
     Indication: Depression
     Dosage: 50 MG QM
     Route: 048
  4. SERTRALINE HYDROCHLORIDE [Suspect]
     Active Substance: SERTRALINE HYDROCHLORIDE
     Dosage: 1050 MG ONCE DAILY (21 TABLETS OF SERTRALINE)
     Route: 048
     Dates: start: 20220405, end: 20220415

REACTIONS (9)
  - Hypoxia [Recovering/Resolving]
  - Blood lactic acid increased [Recovering/Resolving]
  - Dysphoria [Recovering/Resolving]
  - Nausea [Recovering/Resolving]
  - Vomiting [Recovering/Resolving]
  - Dizziness [Recovering/Resolving]
  - Headache [Recovering/Resolving]
  - Hepatic enzyme increased [Recovering/Resolving]
  - Intentional overdose [Unknown]

NARRATIVE: CASE EVENT DATE: 20220405
